FAERS Safety Report 9373889 (Version 2)
Quarter: 2013Q3

REPORT INFORMATION
  Report Type: Spontaneous
  Country: US (occurrence: US)
  Receive Date: 20130628
  Receipt Date: 20130814
  Transmission Date: 20140515
  Serious: Yes (Hospitalization)
  Sender: FDA-Public Use
  Company Number: US-B.I. PHARMACEUTICALS,INC./RIDGEFIELD-2013-BI-18149BP

PATIENT
  Age: 86 Year
  Sex: Male
  Weight: 71 kg

DRUGS (3)
  1. PRADAXA [Suspect]
     Indication: ATRIAL FIBRILLATION
     Dosage: 150 MG
     Route: 048
     Dates: start: 2011
  2. LOTENSIN [Concomitant]
     Dosage: 5 MG
     Route: 048
  3. DIGOXIN [Concomitant]
     Dosage: 0.25 MG
     Route: 048

REACTIONS (3)
  - Chest pain [Recovered/Resolved]
  - Heart rate increased [Unknown]
  - Palpitations [Unknown]
